FAERS Safety Report 25505621 (Version 1)
Quarter: 2025Q3

REPORT INFORMATION
  Report Type: Spontaneous
  Country: US (occurrence: US)
  Receive Date: 20250702
  Receipt Date: 20250702
  Transmission Date: 20251021
  Serious: No
  Sender: VERONA PHARMA
  Company Number: US-VERONA PHARMA-VER-004803

PATIENT

DRUGS (1)
  1. OHTUVAYRE [Suspect]
     Active Substance: ENSIFENTRINE
     Indication: Product used for unknown indication
     Dates: start: 202503

REACTIONS (1)
  - Drug ineffective [Unknown]
